FAERS Safety Report 24271934 (Version 1)
Quarter: 2024Q3

REPORT INFORMATION
  Report Type: Spontaneous
  Country: US (occurrence: US)
  Receive Date: 20240902
  Receipt Date: 20240902
  Transmission Date: 20241017
  Serious: Yes (Hospitalization, Other)
  Sender: BRISTOL MYERS SQUIBB
  Company Number: US-BRISTOL-MYERS SQUIBB COMPANY-2024-131986

PATIENT
  Age: 81 Year
  Sex: Male
  Weight: 89.36 kg

DRUGS (1)
  1. POMALYST [Suspect]
     Active Substance: POMALIDOMIDE
     Indication: Plasma cell myeloma
     Dosage: FREQUENCY: 4 MG CAPSULE DAILY FOR 21 DAYS THEN 7 DAYS OF
     Route: 048

REACTIONS (2)
  - Appendicitis [Recovering/Resolving]
  - COVID-19 [Unknown]
